FAERS Safety Report 10993343 (Version 4)
Quarter: 2015Q2

REPORT INFORMATION
  Report Type: Spontaneous
  Country: JP (occurrence: JP)
  Receive Date: 20150407
  Receipt Date: 20150611
  Transmission Date: 20150821
  Serious: Yes (Hospitalization, Other)
  Sender: FDA-Public Use
  Company Number: JP-ASTRAZENECA-2015SE31400

PATIENT
  Age: 1058 Month
  Sex: Female
  Weight: 30 kg

DRUGS (1)
  1. NEXIUM [Suspect]
     Active Substance: ESOMEPRAZOLE MAGNESIUM
     Indication: GASTROOESOPHAGEAL REFLUX DISEASE
     Route: 048
     Dates: start: 20140917, end: 20150311

REACTIONS (9)
  - Decreased appetite [Unknown]
  - Haematemesis [Unknown]
  - Dyspepsia [Not Recovered/Not Resolved]
  - Vomiting [Unknown]
  - Infection in an immunocompromised host [Unknown]
  - Oesophageal ulcer [Unknown]
  - Therapy cessation [Unknown]
  - Pyrexia [Unknown]
  - Agranulocytosis [Recovering/Resolving]

NARRATIVE: CASE EVENT DATE: 201503
